FAERS Safety Report 8367092-9 (Version None)
Quarter: 2012Q2

REPORT INFORMATION
  Report Type: 
  Country: None (occurrence: None)
  Receive Date: 20120517
  Receipt Date: 20120508
  Transmission Date: 20120825
  Serious: Yes (Hospitalization, Other)
  Sender: FDA-Public Use
  Company Number: JP-ASTRAZENECA-2012SE25756

PATIENT
  Age: 80 Year
  Sex: Female
  Weight: 47 kg

DRUGS (12)
  1. LASIX [Concomitant]
     Indication: ASCITES
     Route: 048
     Dates: start: 20111130
  2. CELEBREX [Concomitant]
     Indication: PAIN
     Route: 048
     Dates: start: 20120220
  3. LANSOPRAZOLE [Concomitant]
     Indication: GASTRITIS
     Route: 048
     Dates: start: 20120205
  4. CEFDINIR [Concomitant]
     Indication: CLAVICLE FRACTURE
     Route: 042
     Dates: start: 20120127, end: 20120128
  5. SEVOFLURANE [Concomitant]
     Indication: SURGERY
     Route: 055
     Dates: start: 20120127, end: 20120127
  6. ROCURONIUM BROMIDE [Concomitant]
     Indication: SURGERY
     Route: 042
     Dates: start: 20120127, end: 20120127
  7. PENTAZOCINE LACTATE [Concomitant]
     Indication: SURGERY
     Route: 042
     Dates: start: 20120127, end: 20120127
  8. FASLODEX [Suspect]
     Route: 030
     Dates: start: 20111216, end: 20120119
  9. FASLODEX [Suspect]
     Route: 030
     Dates: start: 20120120
  10. ARIMIDEX [Suspect]
     Indication: BREAST CANCER
     Route: 048
     Dates: start: 20111202
  11. ALDACTONE [Concomitant]
     Indication: ASCITES
     Route: 048
     Dates: start: 20111130
  12. EPHEDRIN [Concomitant]
     Indication: SURGERY
     Route: 042
     Dates: start: 20120127, end: 20120127

REACTIONS (3)
  - HEPATIC FAILURE [None]
  - CLAVICLE FRACTURE [None]
  - IRON DEFICIENCY ANAEMIA [None]
